FAERS Safety Report 9654384 (Version 2)
Quarter: 2013Q4

REPORT INFORMATION
  Report Type: Spontaneous
  Country: US (occurrence: None)
  Receive Date: 20131018
  Receipt Date: 20131030
  Transmission Date: 20140711
  Serious: Yes (Hospitalization, Other)
  Sender: FDA-Public Use
  Company Number: 2013038406

PATIENT
  Age: 51 Year
  Sex: Female
  Weight: 124.74 kg

DRUGS (25)
  1. PRIVIGEN [Suspect]
     Indication: IMMUNODEFICIENCY COMMON VARIABLE
     Route: 042
     Dates: start: 20130416
  2. THEOPHYLLINE CR [Concomitant]
  3. PREDNISONE (PREDNISONE) [Concomitant]
  4. SINGULAIR [Concomitant]
  5. ADVAIR [Concomitant]
  6. QVAR [Concomitant]
  7. ALBUTEROL (SALBUTAMOL) [Concomitant]
  8. NASACORT [Concomitant]
  9. MUCINEX [Concomitant]
  10. CLARITIN (LORATADINE) [Concomitant]
  11. KLOR-CON [Concomitant]
  12. MOTRIN (IBUPROFEN) [Concomitant]
  13. CARDIZEM [Concomitant]
  14. LASIX (FUROSEMIDE) [Concomitant]
  15. ALLOPURINOL (ALLOPURINOL) [Concomitant]
  16. CELEBREX (CELECOXIB) [Concomitant]
  17. ZETIA (EZETIMIBE) [Concomitant]
  18. BENICAR (OLMESARTAN MEDOXOMIL) [Concomitant]
  19. ALBUTEROL SULFATE (SALBUTAMOL SULFATE) [Concomitant]
  20. NEXIUM (ESOMEPRAZOLE MAGNESIUM) [Concomitant]
  21. ATIVAN (LORAZEPAM) [Concomitant]
  22. LEVOTHYROXINE [Concomitant]
  23. MECLIZINE [Concomitant]
  24. BENADRYL (DIPHENHYDRAMINE HYDROCHLORIDE) [Concomitant]
  25. TYLENOL (PARACETAMOL) [Concomitant]

REACTIONS (5)
  - Syncope [None]
  - Grand mal convulsion [None]
  - Asthma [None]
  - Sinusitis [None]
  - Laceration [None]
